APPROVED DRUG PRODUCT: LEVOFLOXACIN
Active Ingredient: LEVOFLOXACIN
Strength: 0.5%
Dosage Form/Route: SOLUTION/DROPS;OPHTHALMIC
Application: A204899 | Product #001
Applicant: PHARMOBEDIENT CONSULTING LLC
Approved: Dec 8, 2017 | RLD: No | RS: No | Type: DISCN